FAERS Safety Report 9184992 (Version 1)
Quarter: 2013Q1

REPORT INFORMATION
  Report Type: Spontaneous
  Country: IN (occurrence: IN)
  Receive Date: 20130325
  Receipt Date: 20130325
  Transmission Date: 20140127
  Serious: Yes (Death)
  Sender: FDA-Public Use
  Company Number: PHHY2013IN027284

PATIENT
  Sex: 0

DRUGS (1)
  1. IMATINIB [Suspect]
     Indication: GASTROINTESTINAL STROMAL TUMOUR
     Dosage: 400 MG, DAILY

REACTIONS (3)
  - Toxicity to various agents [Fatal]
  - Central nervous system haemorrhage [Fatal]
  - Neutropenia [Fatal]
